FAERS Safety Report 21160805 (Version 2)
Quarter: 2022Q3

REPORT INFORMATION
  Report Type: Spontaneous
  Country: US (occurrence: US)
  Receive Date: 20220802
  Receipt Date: 20220804
  Transmission Date: 20221027
  Serious: Yes (Other)
  Sender: FDA-Public Use
  Company Number: US-drreddys-LIT/USA/22/0152827

PATIENT
  Age: 41 Year
  Sex: Female

DRUGS (14)
  1. TREPROSTINIL [Suspect]
     Active Substance: TREPROSTINIL
     Indication: Pulmonary arterial hypertension
     Route: 055
  2. TREPROSTINIL [Suspect]
     Active Substance: TREPROSTINIL
     Dosage: 6 NG/KG/MINUTE
     Route: 042
  3. TREPROSTINIL [Suspect]
     Active Substance: TREPROSTINIL
     Dosage: DOSES WERE INCREASED.
     Route: 042
  4. TREPROSTINIL [Suspect]
     Active Substance: TREPROSTINIL
     Dosage: 14 NG/KG/MINUTE
     Route: 042
  5. TREPROSTINIL [Suspect]
     Active Substance: TREPROSTINIL
     Dosage: TREPROSTINIL WAS AGAIN INCREASED (16 NG/KG/MIN)
     Route: 042
  6. TREPROSTINIL [Suspect]
     Active Substance: TREPROSTINIL
     Dosage: DISCHARGED ON TREPROSTINIL WITH DOSE TITRATION
     Route: 042
  7. WARFARIN [Suspect]
     Active Substance: WARFARIN
     Indication: Pulmonary arterial hypertension
  8. AMBRISENTAN [Concomitant]
     Active Substance: AMBRISENTAN
     Indication: Product used for unknown indication
  9. TADALAFIL [Concomitant]
     Active Substance: TADALAFIL
     Indication: Product used for unknown indication
  10. GABAPENTIN [Concomitant]
     Active Substance: GABAPENTIN
     Indication: Headache
  11. GABAPENTIN [Concomitant]
     Active Substance: GABAPENTIN
     Indication: Vomiting
  12. AMITRIPTYLINE [Concomitant]
     Active Substance: AMITRIPTYLINE
     Indication: Headache
  13. AMITRIPTYLINE [Concomitant]
     Active Substance: AMITRIPTYLINE
     Indication: Vomiting
  14. MORPHINE [Concomitant]
     Active Substance: MORPHINE
     Indication: Headache

REACTIONS (1)
  - Subdural haematoma [Recovering/Resolving]
